FAERS Safety Report 17487863 (Version 2)
Quarter: 2020Q1

REPORT INFORMATION
  Report Type: Spontaneous
  Country: IT (occurrence: IT)
  Receive Date: 20200303
  Receipt Date: 20200327
  Transmission Date: 20200409
  Serious: Yes (Death, Hospitalization)
  Sender: FDA-Public Use
  Company Number: IT-BIOGEN-2020BI00844038

PATIENT
  Age: 38 Year
  Sex: Female

DRUGS (8)
  1. METHYLPREDNISOLONE. [Concomitant]
     Active Substance: METHYLPREDNISOLONE
     Indication: PROPHYLAXIS
     Route: 042
  2. CETIRIZINE [Concomitant]
     Active Substance: CETIRIZINE HYDROCHLORIDE
     Indication: PROPHYLAXIS
     Route: 048
  3. PREDNISONE. [Concomitant]
     Active Substance: PREDNISONE
     Indication: ANTIVIRAL PROPHYLAXIS
     Dosage: TAPERING WITH A STARTING DOSE OF 50 MG
  4. TYSABRI [Suspect]
     Active Substance: NATALIZUMAB
     Indication: RELAPSING-REMITTING MULTIPLE SCLEROSIS
     Dosage: 20 INFUSIONS
     Route: 065
     Dates: start: 201511, end: 201707
  5. ALEMTUZUMAB [Suspect]
     Active Substance: ALEMTUZUMAB
     Indication: PRODUCT USED FOR UNKNOWN INDICATION
     Route: 065
     Dates: start: 20171023
  6. PARACETAMOL [Concomitant]
     Active Substance: ACETAMINOPHEN
     Indication: PROPHYLAXIS
     Route: 048
  7. THIAMAZOLE [Concomitant]
     Active Substance: METHIMAZOLE
     Indication: AUTOIMMUNE THYROIDITIS
     Route: 065
  8. ACYCLOVIR. [Concomitant]
     Active Substance: ACYCLOVIR
     Indication: ANTIVIRAL PROPHYLAXIS
     Route: 065

REACTIONS (2)
  - Cardiac arrest [Fatal]
  - Bronchopulmonary aspergillosis [Fatal]

NARRATIVE: CASE EVENT DATE: 2017
